FAERS Safety Report 11430313 (Version 1)
Quarter: 2015Q3

REPORT INFORMATION
  Report Type: Spontaneous
  Country: US (occurrence: US)
  Receive Date: 20150828
  Receipt Date: 20150828
  Transmission Date: 20151125
  Serious: Yes (Other)
  Sender: FDA-Public Use
  Company Number: US-ROCHE-1178833

PATIENT
  Sex: Female

DRUGS (7)
  1. PEGASYS [Suspect]
     Active Substance: PEGINTERFERON ALFA-2A
     Indication: CHRONIC HEPATITIS C
     Route: 058
     Dates: start: 20120829, end: 20130102
  2. PEGASYS [Suspect]
     Active Substance: PEGINTERFERON ALFA-2A
     Route: 058
     Dates: start: 20130102
  3. RIBASPHERE [Suspect]
     Active Substance: RIBAVIRIN
     Dosage: IN DAILY DIVIDED DOSES
     Route: 048
  4. RIBASPHERE [Suspect]
     Active Substance: RIBAVIRIN
     Indication: CHRONIC HEPATITIS C
     Dosage: IN DAILY DIVIDED DOSES
     Route: 048
     Dates: start: 20120829
  5. RIBASPHERE [Suspect]
     Active Substance: RIBAVIRIN
     Dosage: IN DAILY DIVIDED DOSES
     Route: 048
  6. RIBASPHERE [Suspect]
     Active Substance: RIBAVIRIN
     Dosage: IN DAILY DIVIDED DOSES
     Route: 048
  7. TELAPREVIR [Suspect]
     Active Substance: TELAPREVIR
     Indication: CHRONIC HEPATITIS C
     Route: 065
     Dates: start: 20120829

REACTIONS (4)
  - Nausea [Unknown]
  - Haemoglobin decreased [Unknown]
  - Diarrhoea [Unknown]
  - Vomiting [Unknown]
